FAERS Safety Report 5957347-7 (Version None)
Quarter: 2008Q4

REPORT INFORMATION
  Report Type: 
  Country: None (occurrence: None)
  Receive Date: 20081114
  Receipt Date: 20081103
  Transmission Date: 20090506
  Serious: Yes (Hospitalization)
  Sender: FDA-Public Use
  Company Number: 100#08#2008-05630

PATIENT
  Age: 84 Year
  Sex: Female

DRUGS (1)
  1. DICLOFENAC (DICLOFENAC) [Suspect]
     Indication: CHEST INJURY

REACTIONS (10)
  - AGRANULOCYTOSIS [None]
  - BLOOD PRESSURE SYSTOLIC DECREASED [None]
  - ECTHYMA [None]
  - GANGRENE [None]
  - HEART RATE INCREASED [None]
  - LEUKOCYTOCLASTIC VASCULITIS [None]
  - MORGANELLA INFECTION [None]
  - SCAR [None]
  - SYSTEMIC INFLAMMATORY RESPONSE SYNDROME [None]
  - VASCULITIS NECROTISING [None]
